FAERS Safety Report 5387185-8 (Version None)
Quarter: 2007Q3

REPORT INFORMATION
  Report Type: 
  Country: None (occurrence: None)
  Receive Date: 20070711
  Receipt Date: 20070703
  Transmission Date: 20080115
  Serious: Yes (Other)
  Sender: FDA-Public Use
  Company Number: 2007SP013434

PATIENT
  Age: 68 Year
  Sex: Male

DRUGS (10)
  1. TEMOZOLOMIDE [Suspect]
     Indication: MIXED OLIGO-ASTROCYTOMA
     Dosage: SEE IMAGE
     Route: 048
     Dates: start: 20050401
  2. TEMOZOLOMIDE [Suspect]
     Indication: MIXED OLIGO-ASTROCYTOMA
     Dosage: SEE IMAGE
     Route: 048
     Dates: start: 20050601
  3. DILANTIN KAPSEAL [Suspect]
     Indication: MIXED OLIGO-ASTROCYTOMA
     Dosage: 250 MG; BID;
     Dates: end: 20050401
  4. DILANTIN KAPSEAL [Suspect]
     Indication: MIXED OLIGO-ASTROCYTOMA
     Dosage: 250 MG; BID;
     Dates: start: 20050401
  5. PROTONIX [Concomitant]
  6. TERAZOSIN HCL [Concomitant]
  7. COLACE [Concomitant]
  8. VITAMIN CAP [Concomitant]
  9. ZOFRAN [Concomitant]
  10. LOVONOX [Concomitant]

REACTIONS (10)
  - ABASIA [None]
  - AGITATION [None]
  - ANTICONVULSANT DRUG LEVEL INCREASED [None]
  - CONFUSIONAL STATE [None]
  - DELIRIUM [None]
  - DRUG INTERACTION [None]
  - HALLUCINATION, VISUAL [None]
  - POOR QUALITY SLEEP [None]
  - RESTLESSNESS [None]
  - SUBDURAL HAEMATOMA [None]
